FAERS Safety Report 24640324 (Version 2)
Quarter: 2024Q4

REPORT INFORMATION
  Report Type: Spontaneous
  Country: US (occurrence: US)
  Receive Date: 20241120
  Receipt Date: 20241230
  Transmission Date: 20250115
  Serious: No
  Sender: ELI LILLY AND COMPANY
  Company Number: US-ELI_LILLY_AND_COMPANY-US202411011296

PATIENT
  Age: 55 Year
  Sex: Female

DRUGS (2)
  1. ZEPBOUND [Suspect]
     Active Substance: TIRZEPATIDE
     Indication: Product used for unknown indication
     Dosage: 2.5 MG, UNKNOWN
     Route: 058
     Dates: start: 20241023
  2. ZEPBOUND [Suspect]
     Active Substance: TIRZEPATIDE
     Dosage: 5 MG, UNKNOWN
     Route: 058

REACTIONS (5)
  - Illness [Unknown]
  - Decreased appetite [Unknown]
  - Fatigue [Unknown]
  - Nausea [Unknown]
  - Vomiting [Unknown]
